FAERS Safety Report 4963486-X (Version None)
Quarter: 2006Q2

REPORT INFORMATION
  Report Type: 
  Country: None (occurrence: None)
  Receive Date: 20060404
  Receipt Date: 20060404
  Transmission Date: 20061013
  Serious: Yes (Hospitalization)
  Sender: FDA-Public Use
  Company Number: None

PATIENT
  Sex: Female
  Weight: 79.8 kg

DRUGS (7)
  1. LENALIDOMIDE   15 MG/M2 [Suspect]
     Indication: GLIOBLASTOMA
     Dosage: 15 MG/M2 QD X 21 DAYS PO
     Route: 048
     Dates: start: 20060316, end: 20060328
  2. THYROID TAB [Concomitant]
  3. CELEXA [Concomitant]
  4. KEPPRA [Concomitant]
  5. DECADRON [Concomitant]
  6. PENTAMIDINE [Concomitant]
  7. LOVENOX [Concomitant]

REACTIONS (4)
  - CARDIOMYOPATHY [None]
  - CHEST X-RAY ABNORMAL [None]
  - ELECTROCARDIOGRAM ABNORMAL [None]
  - PULMONARY EMBOLISM [None]
